FAERS Safety Report 13688569 (Version 3)
Quarter: 2017Q3

REPORT INFORMATION
  Report Type: Spontaneous
  Country: PE (occurrence: PE)
  Receive Date: 20170626
  Receipt Date: 20170811
  Transmission Date: 20171127
  Serious: Yes (Hospitalization, Other)
  Sender: FDA-Public Use
  Company Number: PE-009507513-1706PER008598

PATIENT
  Age: 25 Year
  Sex: Female

DRUGS (6)
  1. RIFAMPIN. [Concomitant]
     Active Substance: RIFAMPIN
     Indication: TUBERCULOSIS
     Dosage: UNK
  2. ETHAMBUTOL [Concomitant]
     Active Substance: ETHAMBUTOL HYDROCHLORIDE
     Indication: TUBERCULOSIS
     Dosage: 52 DOSES, UNK
  3. ISONIAZID. [Concomitant]
     Active Substance: ISONIAZID
     Dosage: UNK
  4. ISONIAZID. [Concomitant]
     Active Substance: ISONIAZID
     Indication: TUBERCULOSIS
     Dosage: 52 DOSES, UNK
  5. PYRAZINAMIDE. [Concomitant]
     Active Substance: PYRAZINAMIDE
     Indication: TUBERCULOSIS
     Dosage: 52 DOSES, UNK
  6. IMPLANON [Suspect]
     Active Substance: ETONOGESTREL
     Indication: CONTRACEPTION
     Dosage: 1 IMPLANT EVERY 3 YEARS
     Route: 059
     Dates: start: 20150429

REACTIONS (4)
  - Pregnancy with implant contraceptive [Unknown]
  - Malaise [Unknown]
  - Unintended pregnancy [Unknown]
  - Dengue fever [Not Recovered/Not Resolved]

NARRATIVE: CASE EVENT DATE: 20170523
